FAERS Safety Report 24453332 (Version 2)
Quarter: 2024Q4

REPORT INFORMATION
  Report Type: Report from Study
  Country: US (occurrence: US)
  Receive Date: 20241017
  Receipt Date: 20241018
  Transmission Date: 20250114
  Serious: No
  Sender: ROCHE
  Company Number: US-ROCHE-3274696

PATIENT
  Age: 47 Year
  Sex: Female

DRUGS (2)
  1. RITUXAN [Suspect]
     Active Substance: RITUXIMAB
     Indication: Concentric sclerosis
     Dosage: AND 12 MONTHS
     Route: 042
     Dates: start: 20230127
  2. RITUXAN [Suspect]
     Active Substance: RITUXIMAB
     Indication: Multiple sclerosis
     Dosage: STRENGTH: 10MG/ML
     Route: 041
     Dates: start: 20230127

REACTIONS (2)
  - Off label use [Unknown]
  - No adverse event [Unknown]
